FAERS Safety Report 7130791-0 (Version None)
Quarter: 2010Q4

REPORT INFORMATION
  Report Type: 
  Country: None (occurrence: None)
  Receive Date: 20101201
  Receipt Date: 20101122
  Transmission Date: 20110411
  Serious: Yes (Hospitalization)
  Sender: FDA-Public Use
  Company Number: PHHO2010FR17605

PATIENT
  Sex: Male
  Weight: 73 kg

DRUGS (3)
  1. AMN107 AMN+CAP [Suspect]
     Indication: CHRONIC MYELOID LEUKAEMIA
     Dosage: 600 MG/DAY
     Route: 048
     Dates: start: 20101018, end: 20101024
  2. GLIVEC [Concomitant]
  3. TIMOPTOL [Concomitant]

REACTIONS (12)
  - ABDOMINAL PAIN LOWER [None]
  - BLADDER CATHETERISATION [None]
  - DYSURIA [None]
  - HAEMATURIA [None]
  - NEOPLASM MALIGNANT [None]
  - NEOPLASM PROSTATE [None]
  - PANCREATIC ENLARGEMENT [None]
  - PANCREATITIS [None]
  - PROSTATIC OBSTRUCTION [None]
  - PROSTATOMEGALY [None]
  - PYREXIA [None]
  - URINARY RETENTION [None]
